FAERS Safety Report 10146385 (Version 4)
Quarter: 2015Q1

REPORT INFORMATION
  Report Type: Spontaneous
  Country: US (occurrence: US)
  Receive Date: 20140501
  Receipt Date: 20150113
  Transmission Date: 20150720
  Serious: Yes (Hospitalization, Other)
  Sender: FDA-Public Use
  Company Number: US-BAYER-2014-062697

PATIENT
  Age: 24 Year
  Sex: Female
  Weight: 49.89 kg

DRUGS (1)
  1. MIRENA [Suspect]
     Active Substance: LEVONORGESTREL
     Indication: CONTRACEPTION
     Dosage: 20 MCG/24HR, CONT
     Route: 015
     Dates: start: 201301, end: 20130610

REACTIONS (14)
  - Dyspareunia [None]
  - Injury [None]
  - Abdominal pain lower [None]
  - Pelvic haemorrhage [None]
  - Abdominal pain [None]
  - Abdominal discomfort [None]
  - Pain [None]
  - Procedural pain [None]
  - Emotional distress [None]
  - Anxiety [None]
  - Post procedural discomfort [None]
  - Device dislocation [None]
  - Uterine perforation [None]
  - Genital haemorrhage [None]

NARRATIVE: CASE EVENT DATE: 2013
